FAERS Safety Report 7894257-2 (Version None)
Quarter: 2011Q4

REPORT INFORMATION
  Report Type: 
  Country: None (occurrence: None)
  Receive Date: 20111104
  Receipt Date: 20111020
  Transmission Date: 20120403
  Serious: Yes (Other)
  Sender: FDA-Public Use
  Company Number: GB-ARROW GEN-2011-17377

PATIENT
  Age: 70 Year
  Sex: Male
  Weight: 73 kg

DRUGS (6)
  1. CLONAZEPAM [Concomitant]
     Indication: PRODUCT USED FOR UNKNOWN INDICATION
     Dosage: 0.75 MG, DAILY
     Route: 065
  2. VENLAFAXINE HYDROCHLORIDE [Suspect]
     Indication: ANXIETY
     Route: 065
  3. MIRTAZAPINE [Suspect]
     Indication: ANXIETY
     Dosage: 30 MG, UNKNOWN
     Route: 048
  4. VENLAFAXINE HYDROCHLORIDE [Suspect]
     Indication: DEPRESSION
     Dosage: 37.5 MG, DAILY
     Route: 065
     Dates: start: 20060201
  5. MIRTAZAPINE [Suspect]
     Indication: PRODUCT USED FOR UNKNOWN INDICATION
     Dosage: 45 MG, DAILY
     Route: 048
  6. MIRTAZAPINE [Suspect]
     Indication: DEPRESSION
     Dosage: 15 MG, DAILY
     Route: 048
     Dates: start: 20060601

REACTIONS (4)
  - PARKINSONIAN GAIT [None]
  - DRUG WITHDRAWAL SYNDROME [None]
  - MALAISE [None]
  - COGWHEEL RIGIDITY [None]
